FAERS Safety Report 5863233-3 (Version None)
Quarter: 2008Q3

REPORT INFORMATION
  Report Type: 
  Country: None (occurrence: None)
  Receive Date: 20080828
  Receipt Date: 20080818
  Transmission Date: 20090109
  Serious: Yes (Hospitalization)
  Sender: FDA-Public Use
  Company Number: FR-PURDUE-GBR_2008_0004339

PATIENT
  Age: 45 Year
  Sex: Male

DRUGS (9)
  1. SEVREDOL TABLETS 10 MG [Suspect]
     Indication: PELVIC PAIN
     Dosage: 10 TO 40 MG
     Route: 048
     Dates: end: 20080311
  2. DURAGESIC-100 [Suspect]
     Indication: PELVIC PAIN
     Route: 062
  3. LIORESAL [Concomitant]
     Indication: DRUG USE FOR UNKNOWN INDICATION
     Dosage: 10 MG, UNK
     Route: 065
  4. RIVOTRIL [Concomitant]
     Indication: ANALGESIA
     Dosage: 2.5 MG/ML, UNK
     Route: 048
     Dates: end: 20080311
  5. SKENAN [Concomitant]
     Indication: ANALGESIA
     Dosage: 30 MG, Q12H
     Route: 065
  6. MORPHINE [Concomitant]
     Indication: ANALGESIA
     Dosage: 10 MG, Q4H
     Route: 065
  7. NEURONTIN [Concomitant]
     Indication: ANALGESIA
     Route: 065
  8. ACETAMINOPHEN [Concomitant]
     Indication: ANALGESIA
     Dosage: UNK, UNK
     Route: 065
  9. PROPOXYPHENE HCL AND ACETAMINOPHEN [Concomitant]

REACTIONS (3)
  - COMA [None]
  - LUNG DISORDER [None]
  - THERAPEUTIC AGENT TOXICITY [None]
